FAERS Safety Report 8845606 (Version 1)
Quarter: 2012Q4

REPORT INFORMATION
  Report Type: 
  Country: US (occurrence: US)
  Receive Date: 20121017
  Receipt Date: 20121017
  Transmission Date: 20130627
  Serious: Yes (Other)
  Sender: FDA-Public Use
  Company Number: US-ROCHE-1131803

PATIENT
  Age: 35 Year
  Sex: Female
  Weight: 72.3 kg

DRUGS (4)
  1. NUTROPIN AQ [Suspect]
     Indication: GROWTH HORMONE DEFICIENCY
     Route: 065
  2. SYNTHROID [Concomitant]
     Route: 065
  3. PHENTERMINE [Concomitant]
  4. ROCALTROL [Concomitant]

REACTIONS (6)
  - Sleep disorder [Unknown]
  - Abdominal pain upper [Unknown]
  - Abortion spontaneous [Unknown]
  - Libido decreased [Unknown]
  - Exposure during pregnancy [Unknown]
  - Wolff-Parkinson-White syndrome [Unknown]
